FAERS Safety Report 19615607 (Version 2)
Quarter: 2021Q3

REPORT INFORMATION
  Report Type: Spontaneous
  Country: US (occurrence: US)
  Receive Date: 20210727
  Receipt Date: 20210817
  Transmission Date: 20211014
  Serious: No
  Sender: FDA-Public Use
  Company Number: US-LUPIN PHARMACEUTICALS INC.-2021-11404

PATIENT

DRUGS (3)
  1. ALPRAZOLAM. [Concomitant]
     Active Substance: ALPRAZOLAM
     Indication: PANIC DISORDER
     Dosage: UNK
     Route: 065
  2. ALPRAZOLAM. [Concomitant]
     Active Substance: ALPRAZOLAM
     Indication: GENERALISED ANXIETY DISORDER
  3. QUETIAPINE FUMARATE EXTENDED?RELEASE TABLETS, 300 MG [Suspect]
     Active Substance: QUETIAPINE FUMARATE
     Indication: BIPOLAR DISORDER
     Dosage: UNK
     Route: 065

REACTIONS (10)
  - Mania [Unknown]
  - Malaise [Unknown]
  - Affective disorder [Unknown]
  - Depression [Unknown]
  - Panic disorder [Unknown]
  - Drug ineffective [Unknown]
  - Quality of life decreased [Unknown]
  - Anxiety [Unknown]
  - Insomnia [Unknown]
  - Product substitution issue [Unknown]
